FAERS Safety Report 13655767 (Version 1)
Quarter: 2017Q2

REPORT INFORMATION
  Report Type: Spontaneous
  Country: US (occurrence: US)
  Receive Date: 20170615
  Receipt Date: 20170615
  Transmission Date: 20170830
  Serious: No
  Sender: FDA-Public Use
  Company Number: US-GLAXOSMITHKLINE-US2017089320

PATIENT
  Age: 34 Year
  Sex: Female

DRUGS (1)
  1. EXCEDRIN MIGRAINE [Suspect]
     Active Substance: ACETAMINOPHEN\ASPIRIN\CAFFEINE
     Indication: HEADACHE
     Dosage: UNK
     Dates: start: 20170608, end: 20170608

REACTIONS (7)
  - Hypersensitivity [Not Recovered/Not Resolved]
  - Throat irritation [Unknown]
  - Lip swelling [Not Recovered/Not Resolved]
  - Lip pruritus [Unknown]
  - Oral pruritus [Not Recovered/Not Resolved]
  - Product use in unapproved indication [Unknown]
  - Urticaria [Not Recovered/Not Resolved]

NARRATIVE: CASE EVENT DATE: 20170608
